FAERS Safety Report 10060367 (Version 2)
Quarter: 2014Q2

REPORT INFORMATION
  Report Type: Spontaneous
  Country: IT (occurrence: IT)
  Receive Date: 20140404
  Receipt Date: 20140404
  Transmission Date: 20141212
  Serious: Yes (Other)
  Sender: FDA-Public Use
  Company Number: IT-009507513-1307ITA003213

PATIENT
  Age: 72 Year
  Sex: Male

DRUGS (9)
  1. FOSAVANCE [Suspect]
     Indication: OSTEOPOROSIS
     Dosage: 70 MG + 70 MCG, WEEKLY
     Route: 048
     Dates: start: 20080101, end: 20130602
  2. PANTOPRAZOLE SODIUM [Concomitant]
     Dosage: 20 MG, UNK
     Route: 048
  3. CLOPIDOGREL [Concomitant]
     Dosage: 75 MG, UNK
     Route: 048
  4. PRAVASTATIN SODIUM [Concomitant]
     Dosage: 40 MG, UNK
     Route: 048
  5. LOSARTAN POTASSIUM [Concomitant]
     Dosage: 50 MG, UNK
     Route: 048
  6. CARDIOASPIRIN [Concomitant]
     Route: 048
  7. IVABRADINE [Concomitant]
     Dosage: 10 MG, UNK
     Route: 048
  8. LUVION (CANRENONE) [Concomitant]
     Route: 048
  9. SPIRIVA [Concomitant]
     Dosage: 18 MICROGRAM, UNK
     Route: 055

REACTIONS (1)
  - Osteonecrosis [Recovering/Resolving]
